FAERS Safety Report 6317557-6 (Version None)
Quarter: 2009Q3

REPORT INFORMATION
  Report Type: 
  Country: None (occurrence: None)
  Receive Date: 20090821
  Receipt Date: 20090814
  Transmission Date: 20100115
  Serious: Yes (Other)
  Sender: FDA-Public Use
  Company Number: BR-BAYER-200920609LA

PATIENT
  Age: 46 Year
  Sex: Female
  Weight: 65 kg

DRUGS (1)
  1. MIRENA [Suspect]
     Indication: MENSTRUAL CYCLE MANAGEMENT
     Dosage: FREQUENCY: CONTINUOUS
     Route: 015
     Dates: start: 20040101, end: 20090814

REACTIONS (1)
  - UTERINE ATROPHY [None]
